FAERS Safety Report 21028123 (Version 2)
Quarter: 2022Q3

REPORT INFORMATION
  Report Type: Spontaneous
  Country: RS (occurrence: None)
  Receive Date: 20220630
  Receipt Date: 20220707
  Transmission Date: 20221027
  Serious: Yes (Other)
  Sender: FDA-Public Use
  Company Number: RS-ROCHE-3124220

PATIENT
  Age: 53 Year
  Sex: Female

DRUGS (3)
  1. BEVACIZUMAB [Suspect]
     Active Substance: BEVACIZUMAB
     Indication: Intestinal adenocarcinoma
     Route: 065
     Dates: start: 20190905
  2. FLUOROURACIL [Suspect]
     Active Substance: FLUOROURACIL
     Indication: Intestinal adenocarcinoma
     Route: 065
  3. LEUCOVORIN [Suspect]
     Active Substance: LEUCOVORIN
     Indication: Intestinal adenocarcinoma
     Route: 065

REACTIONS (4)
  - Liver disorder [Unknown]
  - Hypersensitivity [Unknown]
  - Choking [Unknown]
  - COVID-19 [Unknown]

NARRATIVE: CASE EVENT DATE: 20220525
